FAERS Safety Report 9859697 (Version 1)
Quarter: 2014Q1

REPORT INFORMATION
  Report Type: Report from Study
  Country: US (occurrence: US)
  Receive Date: 20140131
  Receipt Date: 20140131
  Transmission Date: 20141002
  Serious: Yes (Death)
  Sender: FDA-Public Use
  Company Number: US-GLAXOSMITHKLINE-B0964883A

PATIENT
  Sex: 0

DRUGS (3)
  1. MELPHALAN [Suspect]
     Indication: BONE MARROW TRANSPLANT
     Route: 065
  2. FLUDARABINE [Suspect]
     Indication: BONE MARROW TRANSPLANT
     Route: 065
  3. TOTAL BODY IRRADIATION [Suspect]
     Indication: BONE MARROW TRANSPLANT
     Route: 065

REACTIONS (1)
  - Multi-organ failure [Fatal]
